FAERS Safety Report 7446225-2 (Version None)
Quarter: 2011Q2

REPORT INFORMATION
  Report Type: 
  Country: None (occurrence: None)
  Receive Date: 20110429
  Receipt Date: 20110419
  Transmission Date: 20111010
  Serious: Yes (Hospitalization)
  Sender: FDA-Public Use
  Company Number: JP-JNJFOC-20110310022

PATIENT
  Sex: Male

DRUGS (18)
  1. MUCODYNE [Concomitant]
     Indication: PRODUCTIVE COUGH
     Route: 048
  2. PREDNISOLONE [Suspect]
     Route: 065
  3. PROTECADIN [Concomitant]
     Indication: GASTRITIS PROPHYLAXIS
     Route: 048
  4. ROCALTROL [Concomitant]
     Indication: HYPERPARATHYROIDISM
     Route: 048
  5. VENCOLL [Concomitant]
     Indication: CONSTIPATION
     Route: 048
  6. LEVOFLOXACIN [Suspect]
     Route: 048
     Dates: start: 20110314, end: 20110316
  7. RENIVACE [Concomitant]
     Indication: BLOOD PRESSURE DECREASED
     Route: 048
  8. GLUFAST [Concomitant]
     Indication: DIABETES MELLITUS
     Route: 048
  9. LEVOFLOXACIN [Suspect]
     Indication: PYREXIA
     Route: 048
     Dates: start: 20110314, end: 20110316
  10. PREDNISOLONE [Suspect]
     Indication: PRODUCT USED FOR UNKNOWN INDICATION
     Route: 065
  11. OLMETEC [Concomitant]
     Indication: BLOOD PRESSURE DECREASED
     Route: 048
  12. AMLODIN [Concomitant]
     Indication: BLOOD PRESSURE DECREASED
     Route: 048
  13. LEVOFLOXACIN [Suspect]
     Indication: PNEUMONIA
     Route: 048
     Dates: start: 20110314, end: 20110316
  14. FLAVERIC [Concomitant]
     Indication: COUGH
     Route: 048
  15. LEVOFLOXACIN [Suspect]
     Route: 048
     Dates: start: 20110314, end: 20110316
  16. NAFAMOSTAT [Suspect]
     Indication: DIALYSIS
     Route: 042
  17. PREDNISOLONE [Suspect]
     Route: 065
  18. ARTIST [Concomitant]
     Indication: BLOOD PRESSURE DECREASED
     Route: 065

REACTIONS (2)
  - EOSINOPHILIA [None]
  - PROCEDURAL HYPOTENSION [None]
